FAERS Safety Report 13978097 (Version 3)
Quarter: 2017Q4

REPORT INFORMATION
  Report Type: Spontaneous
  Country: US (occurrence: US)
  Receive Date: 20170915
  Receipt Date: 20171023
  Transmission Date: 20180321
  Serious: Yes (Death, Hospitalization)
  Sender: FDA-Public Use
  Company Number: US-ACTELION-A-NJ2017-159245

PATIENT
  Age: 63 Year
  Sex: Female

DRUGS (13)
  1. FUROSEMIDE. [Concomitant]
     Active Substance: FUROSEMIDE
     Dosage: 20 MG, BID
     Route: 048
  2. DULOXETINE. [Concomitant]
     Active Substance: DULOXETINE
  3. OPSUMIT [Suspect]
     Active Substance: MACITENTAN
     Indication: PULMONARY ARTERIAL HYPERTENSION
     Dosage: 10 MG, QD
     Route: 048
     Dates: start: 201603, end: 20171007
  4. VITAMIN D [Concomitant]
     Active Substance: CHOLECALCIFEROL
  5. ADCIRCA [Concomitant]
     Active Substance: TADALAFIL
     Dosage: 40 MG, QD
     Route: 048
     Dates: start: 20170316
  6. LEVOTHYROXINE. [Concomitant]
     Active Substance: LEVOTHYROXINE
     Dosage: 50 MCG, QD
     Route: 048
  7. WARFARIN [Concomitant]
     Active Substance: WARFARIN
     Dosage: 3 MG, AS DIRECTED
  8. PANTOPRAZOLE [Concomitant]
     Active Substance: PANTOPRAZOLE
     Dosage: 40 MG, BID
     Route: 048
  9. DILTIAZEM XR [Concomitant]
     Active Substance: DILTIAZEM
     Dosage: 120 MG, QD
     Route: 048
  10. FLUTICASONE. [Concomitant]
     Active Substance: FLUTICASONE
     Dosage: 2 SPRAYS EACH NOSTRIL QD
     Route: 045
  11. POTASSIUM CHLORIDE. [Concomitant]
     Active Substance: POTASSIUM CHLORIDE
     Dosage: 10 MEQ, QD
     Route: 048
  12. SODIUM BICARBONATE. [Concomitant]
     Active Substance: SODIUM BICARBONATE
     Dosage: 650 MG, TID
     Route: 048
  13. SPIRONOLACTONE. [Concomitant]
     Active Substance: SPIRONOLACTONE
     Dosage: 25 MG, QD
     Route: 048

REACTIONS (20)
  - Hypotension [Unknown]
  - Dialysis [Unknown]
  - Blood creatinine increased [Unknown]
  - Red blood cell count increased [Recovering/Resolving]
  - Haemoglobin decreased [Unknown]
  - Dyspnoea [Unknown]
  - Depressed level of consciousness [Fatal]
  - Fluid overload [Recovered/Resolved]
  - Pulmonary arterial wedge pressure increased [Unknown]
  - Pneumatosis intestinalis [Unknown]
  - Platelet count decreased [Unknown]
  - Generalised oedema [Unknown]
  - Intestinal ischaemia [Unknown]
  - White blood cell count increased [Fatal]
  - Haematocrit decreased [Unknown]
  - Drug dose omission [Unknown]
  - Septic shock [Fatal]
  - Renal failure [Unknown]
  - Weight increased [Unknown]
  - Tachycardia [Fatal]

NARRATIVE: CASE EVENT DATE: 20170901
